FAERS Safety Report 13304699 (Version 1)
Quarter: 2017Q1

REPORT INFORMATION
  Report Type: Spontaneous
  Country: IR (occurrence: IR)
  Receive Date: 20170308
  Receipt Date: 20170308
  Transmission Date: 20170428
  Serious: Yes (Death, Hospitalization, Other)
  Sender: FDA-Public Use
  Company Number: IR-APOTEX-2017AP008088

PATIENT
  Age: 9 Year
  Sex: Female

DRUGS (2)
  1. PAXIL [Suspect]
     Active Substance: PAROXETINE HYDROCHLORIDE
     Dosage: 20 MG, UNK
     Route: 065
  2. PAXIL [Suspect]
     Active Substance: PAROXETINE HYDROCHLORIDE
     Indication: MAJOR DEPRESSION
     Dosage: 10 MG, UNK
     Route: 065

REACTIONS (7)
  - Increased appetite [Fatal]
  - Drug ineffective [Fatal]
  - Completed suicide [Fatal]
  - Anxiety [Fatal]
  - Psychomotor hyperactivity [Fatal]
  - Prescription drug used without a prescription [Fatal]
  - Insomnia [Fatal]
